FAERS Safety Report 21172163 (Version 6)
Quarter: 2023Q4

REPORT INFORMATION
  Report Type: Spontaneous
  Country: JP (occurrence: JP)
  Receive Date: 20220804
  Receipt Date: 20231213
  Transmission Date: 20240109
  Serious: Yes (Hospitalization, Other)
  Sender: FDA-Public Use
  Company Number: JP-MTPC-MTPC2022-0020241

PATIENT
  Age: 47 Year
  Sex: Male
  Weight: 57 kg

DRUGS (2)
  1. REMICADE [Suspect]
     Active Substance: INFLIXIMAB
     Indication: Crohn^s disease
     Dosage: SINCE YEAR 20XX-10
     Route: 041
  2. MESALAMINE [Suspect]
     Active Substance: MESALAMINE
     Indication: Crohn^s disease
     Dosage: SINCE YEAR 20XX-10
     Route: 065

REACTIONS (5)
  - Pleuroparenchymal fibroelastosis [Unknown]
  - Pulmonary toxicity [Recovering/Resolving]
  - Bronchopulmonary aspergillosis [Recovering/Resolving]
  - Mycobacterium avium complex infection [Unknown]
  - Pneumonia bacterial [Unknown]
